FAERS Safety Report 18463437 (Version 2)
Quarter: 2020Q4

REPORT INFORMATION
  Report Type: Spontaneous
  Country: IT (occurrence: IT)
  Receive Date: 20201104
  Receipt Date: 20201123
  Transmission Date: 20210114
  Serious: Yes (Life-Threatening, Hospitalization)
  Sender: FDA-Public Use
  Company Number: IT-EISAI MEDICAL RESEARCH-EC-2020-083261

PATIENT
  Age: 77 Year
  Sex: Female

DRUGS (4)
  1. EUTIROX [Concomitant]
     Active Substance: LEVOTHYROXINE SODIUM
     Indication: THYROID NEOPLASM
     Dosage: DOSE AND FREQUENCY UNKNOWN
     Route: 065
  2. NADOLOLO SANOFI [Concomitant]
     Indication: SUPRAVENTRICULAR EXTRASYSTOLES
     Dosage: DOSE AND FREQUENCY UNKNOWN
     Route: 065
  3. DIBASE [Concomitant]
     Active Substance: CHOLECALCIFEROL
     Indication: VITAMIN D DEFICIENCY
     Dosage: DOSE AND FREQUENCY UNKNOWN
     Route: 048
  4. LENVIMA [Suspect]
     Active Substance: LENVATINIB
     Indication: THYROID NEOPLASM
     Route: 048
     Dates: start: 20181001, end: 20201019

REACTIONS (2)
  - Acute myocardial infarction [Recovered/Resolved with Sequelae]
  - Atrioventricular block [Recovered/Resolved with Sequelae]

NARRATIVE: CASE EVENT DATE: 20201019
